FAERS Safety Report 25744583 (Version 2)
Quarter: 2025Q3

REPORT INFORMATION
  Report Type: Spontaneous
  Country: US (occurrence: US)
  Receive Date: 20250901
  Receipt Date: 20250902
  Transmission Date: 20251021
  Serious: No
  Sender: ENDO
  Company Number: US-ENDO USA, INC.-2025-000606

PATIENT
  Sex: Male

DRUGS (12)
  1. PREDNISONE [Suspect]
     Active Substance: PREDNISONE
     Indication: Arthralgia
     Dosage: 10 MILLIGRAM, BID
     Route: 065
     Dates: start: 2025
  2. PREDNISONE [Suspect]
     Active Substance: PREDNISONE
     Route: 065
  3. PREDNISONE [Suspect]
     Active Substance: PREDNISONE
     Dosage: 10 MILLIGRAM, BID (SOMETIMES HAS TO TAKE AN EXTRA 5 MG )
     Route: 065
     Dates: start: 2025
  4. XELJANZ XR [Suspect]
     Active Substance: TOFACITINIB CITRATE
     Indication: Product used for unknown indication
     Route: 048
     Dates: start: 202501
  5. RINVOQ [Concomitant]
     Active Substance: UPADACITINIB
     Indication: Product used for unknown indication
     Route: 065
  6. TYLENOL [Concomitant]
     Active Substance: ACETAMINOPHEN
     Indication: Product used for unknown indication
     Route: 065
  7. CLARITIN [Concomitant]
     Active Substance: LORATADINE
     Indication: Product used for unknown indication
     Route: 065
  8. CALCIUM + D [CALCIUM CARBONATE;COLECALCIFEROL] [Concomitant]
     Indication: Product used for unknown indication
     Route: 065
  9. ZYRTEC [Concomitant]
     Active Substance: CETIRIZINE HYDROCHLORIDE
     Indication: Product used for unknown indication
     Route: 065
  10. ZINC [Concomitant]
     Active Substance: ZINC
     Indication: Product used for unknown indication
     Route: 065
  11. MAGNESIUM [Concomitant]
     Active Substance: MAGNESIUM
     Indication: Product used for unknown indication
     Route: 065
  12. MUCINEX D [Concomitant]
     Active Substance: GUAIFENESIN\PSEUDOEPHEDRINE HYDROCHLORIDE
     Indication: Product used for unknown indication
     Route: 065

REACTIONS (2)
  - Arthralgia [Not Recovered/Not Resolved]
  - Drug ineffective [Not Recovered/Not Resolved]

NARRATIVE: CASE EVENT DATE: 20250101
